FAERS Safety Report 5104220-2 (Version None)
Quarter: 2006Q3

REPORT INFORMATION
  Report Type: 
  Country: None (occurrence: None)
  Receive Date: 20060811
  Receipt Date: 20060824
  Transmission Date: 20061208
  Serious: Yes (Other)
  Sender: FDA-Public Use
  Company Number: 2006-BP-09932RO

PATIENT
  Age: 59 Year
  Sex: Female

DRUGS (1)
  1. FLUCONAZOLE [Suspect]
     Dosage: SEE IMAGE

REACTIONS (2)
  - ELECTROCARDIOGRAM QT PROLONGED [None]
  - TORSADE DE POINTES [None]
